FAERS Safety Report 9704428 (Version 1)
Quarter: 2013Q4

REPORT INFORMATION
  Report Type: Spontaneous
  Country: US (occurrence: None)
  Receive Date: 20131121
  Receipt Date: 20131121
  Transmission Date: 20140711
  Serious: Yes (Hospitalization)
  Sender: FDA-Public Use
  Company Number: None

PATIENT
  Age: 58 None
  Sex: Male
  Weight: 83.2 kg

DRUGS (15)
  1. TELAPREVIR [Suspect]
     Route: 048
     Dates: start: 20110822, end: 20111101
  2. DEXLANSOPRAZOLE [Concomitant]
  3. DIAZEPAM [Concomitant]
  4. HYDROCODONE [Concomitant]
  5. IODOQUINOL [Concomitant]
  6. MECLIZINE [Concomitant]
  7. PEGINTERFERON [Concomitant]
  8. PROCHLORPERAZINE [Concomitant]
  9. RIBAVIRIN [Concomitant]
  10. TRAMADOL [Concomitant]
  11. GLUCOSAMINE SULFATE [Concomitant]
  12. MULTIVITAMIN [Concomitant]
  13. OMEGA-3 FATTY ACIDS [Concomitant]
  14. VITAMIN E [Concomitant]
  15. FISH OIL [Concomitant]

REACTIONS (2)
  - Drug reaction with eosinophilia and systemic symptoms [None]
  - Anaemia [None]
